FAERS Safety Report 4824516-9 (Version None)
Quarter: 2005Q4

REPORT INFORMATION
  Report Type: 
  Country: None (occurrence: None)
  Receive Date: 20051110
  Receipt Date: 20051018
  Transmission Date: 20060501
  Serious: Yes (Other)
  Sender: FDA-Public Use
  Company Number: 2005SE05937

PATIENT
  Age: 20 Year
  Sex: Male
  Weight: 55.6 kg

DRUGS (2)
  1. SEROQUEL ENTEROTABLETS [Suspect]
     Indication: PSYCHOTIC DISORDER
     Route: 048
     Dates: start: 20050612, end: 20051019
  2. OXAZEPAM [Concomitant]

REACTIONS (4)
  - BONE MARROW FAILURE [None]
  - GRANULOCYTE COUNT DECREASED [None]
  - PLATELET COUNT DECREASED [None]
  - WHITE BLOOD CELL COUNT DECREASED [None]
